FAERS Safety Report 5320814-3 (Version None)
Quarter: 2007Q2

REPORT INFORMATION
  Report Type: 
  Country: None (occurrence: None)
  Receive Date: 20070502
  Receipt Date: 20070418
  Transmission Date: 20071010
  Serious: Yes (Other)
  Sender: FDA-Public Use
  Company Number: US019923

PATIENT
  Age: 16 Year

DRUGS (2)
  1. PROVIGIL [Suspect]
     Indication: CATAPLEXY
  2. PROVIGIL [Suspect]
     Indication: NARCOLEPSY

REACTIONS (1)
  - MYOCLONIC EPILEPSY [None]
